FAERS Safety Report 7629273-9 (Version None)
Quarter: 2011Q3

REPORT INFORMATION
  Report Type: 
  Country: None (occurrence: None)
  Receive Date: 20110722
  Receipt Date: 20110714
  Transmission Date: 20111222
  Serious: Yes (Other)
  Sender: FDA-Public Use
  Company Number: US-ABBOTT-11P-163-0838836-00

PATIENT
  Age: 62 Year
  Sex: Male

DRUGS (4)
  1. VALPROATE SODIUM [Suspect]
     Indication: AFFECTIVE DISORDER
     Route: 051
  2. VALPROATE SODIUM [Suspect]
     Route: 048
  3. FLUID [Concomitant]
     Indication: PRODUCT USED FOR UNKNOWN INDICATION
     Route: 042
  4. BROAD SPECTRUM ANTIBIOTICS [Concomitant]
     Indication: SEPSIS

REACTIONS (2)
  - COMPARTMENT SYNDROME [None]
  - BLISTER [None]
